FAERS Safety Report 5684068-0 (Version None)
Quarter: 2008Q1

REPORT INFORMATION
  Report Type: 
  Country: None (occurrence: None)
  Receive Date: 20080328
  Receipt Date: 20080328
  Transmission Date: 20080703
  Serious: Yes (Death)
  Sender: FDA-Public Use
  Company Number: None

PATIENT
  Age: 65 Year
  Sex: Female
  Weight: 48.9885 kg

DRUGS (7)
  1. HEPARIN [Suspect]
     Indication: EMBOLIC STROKE
     Dosage: 800 U/HR CONTINUOUS IV DRIP
     Route: 041
     Dates: start: 20080202, end: 20080213
  2. PROTONIX [Concomitant]
  3. DICAL-D [Concomitant]
  4. ZOCOR [Concomitant]
  5. COREG [Concomitant]
  6. SYNTHROID [Concomitant]
  7. ASPIRIN [Concomitant]

REACTIONS (2)
  - COMA [None]
  - HAEMORRHAGE INTRACRANIAL [None]
